FAERS Safety Report 10374252 (Version 2)
Quarter: 2015Q1

REPORT INFORMATION
  Report Type: Report from Study
  Country: BR (occurrence: BR)
  Receive Date: 20140811
  Receipt Date: 20150119
  Transmission Date: 20150720
  Serious: Yes (Hospitalization, Other)
  Sender: FDA-Public Use
  Company Number: BR-BIOGENIDEC-2014BI078488

PATIENT
  Age: 35 Year
  Sex: Female

DRUGS (6)
  1. MAXSULID [Concomitant]
     Active Substance: NIMESULIDE
  2. AVONEX [Suspect]
     Active Substance: INTERFERON BETA-1A
     Indication: MULTIPLE SCLEROSIS
     Route: 030
     Dates: start: 201411
  3. LISADOR [Concomitant]
     Active Substance: DIPYRONE\PROMETHAZINE HYDROCHLORIDE
  4. AVONEX [Suspect]
     Active Substance: INTERFERON BETA-1A
     Indication: MULTIPLE SCLEROSIS
     Route: 030
     Dates: start: 20130329, end: 201407
  5. AVONEX [Suspect]
     Active Substance: INTERFERON BETA-1A
     Indication: MULTIPLE SCLEROSIS
     Route: 030
     Dates: start: 20090701, end: 20130322
  6. NATURETTI [Concomitant]
     Active Substance: HERBALS

REACTIONS (9)
  - Poor venous access [Not Recovered/Not Resolved]
  - Multiple sclerosis relapse [Unknown]
  - Appendicectomy [Unknown]
  - Female sterilisation [Unknown]
  - Menorrhagia [Recovered/Resolved]
  - Anaesthetic complication [Unknown]
  - Stress [Unknown]
  - Benign gastrointestinal neoplasm [Recovered/Resolved with Sequelae]
  - Anxiety [Unknown]

NARRATIVE: CASE EVENT DATE: 2012
